FAERS Safety Report 9135724 (Version 1)
Quarter: 2013Q1

REPORT INFORMATION
  Report Type: Spontaneous
  Country: US (occurrence: US)
  Receive Date: 20130304
  Receipt Date: 20130304
  Transmission Date: 20140127
  Serious: Yes (Other)
  Sender: FDA-Public Use
  Company Number: US-PFIZER INC-2013075114

PATIENT
  Sex: Male

DRUGS (1)
  1. LYRICA [Suspect]
     Dosage: UNK
     Dates: start: 201302

REACTIONS (4)
  - Aphagia [Unknown]
  - Feeling abnormal [Unknown]
  - Asthenia [Unknown]
  - Gastric disorder [Unknown]
